FAERS Safety Report 13108532 (Version 1)
Quarter: 2017Q1

REPORT INFORMATION
  Report Type: Spontaneous
  Country: CN (occurrence: CN)
  Receive Date: 20170112
  Receipt Date: 20170112
  Transmission Date: 20170428
  Serious: Yes (Other)
  Sender: FDA-Public Use
  Company Number: CN-BAYER-2017-003172

PATIENT
  Age: 75 Year
  Sex: Female

DRUGS (2)
  1. BAYASPIRIN 100 MG [Suspect]
     Active Substance: ASPIRIN
     Indication: CEREBRAL INFARCTION
     Dosage: 1 DF, QD (EVERY NIGHT)
  2. GLUCOBAY [Suspect]
     Active Substance: ACARBOSE
     Dosage: 50 MG, UNK

REACTIONS (3)
  - Blood uric acid increased [None]
  - Off label use [None]
  - Transaminases increased [None]

NARRATIVE: CASE EVENT DATE: 20161228
